FAERS Safety Report 6382753-9 (Version None)
Quarter: 2009Q3

REPORT INFORMATION
  Report Type: 
  Country: None (occurrence: None)
  Receive Date: 20090928
  Receipt Date: 20090928
  Transmission Date: 20100115
  Serious: Yes (Life-Threatening, Hospitalization)
  Sender: FDA-Public Use
  Company Number: None

PATIENT
  Sex: Female
  Weight: 65.7716 kg

DRUGS (1)
  1. LEVAQUIN [Suspect]
     Indication: SINUSITIS
     Dosage: ONE TABLET ONCE A DAY PO
     Route: 048
     Dates: start: 20090925, end: 20090925

REACTIONS (3)
  - DYSPHAGIA [None]
  - DYSPNOEA [None]
  - SPEECH DISORDER [None]
